FAERS Safety Report 5816354-5 (Version None)
Quarter: 2008Q3

REPORT INFORMATION
  Report Type: 
  Country: None (occurrence: None)
  Receive Date: 20080721
  Receipt Date: 20080129
  Transmission Date: 20090109
  Serious: No
  Sender: FDA-Public Use
  Company Number: US-BAUSCH-2008BL000396

PATIENT
  Age: 58 Year
  Sex: Female

DRUGS (4)
  1. OPCON-A [Suspect]
     Indication: EYE PRURITUS
     Route: 047
     Dates: start: 20071101, end: 20071101
  2. OPCON-A [Suspect]
     Route: 047
     Dates: start: 20071101, end: 20071101
  3. OPCON-A [Suspect]
     Route: 047
     Dates: start: 20080129, end: 20080129
  4. OPCON-A [Suspect]
     Route: 047
     Dates: start: 20080129, end: 20080129

REACTIONS (2)
  - EYE IRRITATION [None]
  - LACRIMATION INCREASED [None]
